FAERS Safety Report 4326918-6 (Version None)
Quarter: 2004Q1

REPORT INFORMATION
  Report Type: 
  Country: None (occurrence: None)
  Receive Date: 20040330
  Receipt Date: 20010926
  Transmission Date: 20041129
  Serious: Yes (Hospitalization)
  Sender: FDA-Public Use
  Company Number: DE-ROCHE-268873

PATIENT
  Age: 52 Year
  Sex: Female

DRUGS (6)
  1. PEG-INTERFERON ALFA 2A (RO 25-8310) [Suspect]
     Route: 058
     Dates: start: 20010305, end: 20020205
  2. RIBAVIRIN [Suspect]
     Route: 048
     Dates: start: 20010305, end: 20020205
  3. DOXEPIN HCL [Suspect]
     Indication: INSOMNIA
     Route: 048
     Dates: start: 20020306, end: 20020311
  4. BUFLOMEDIL-HCL [Concomitant]
     Route: 048
     Dates: start: 20010821, end: 20010830
  5. GINKGO BILOBA [Concomitant]
     Dosage: STOPPED 30 AUG 2001 AND RESTARTED18 DEC 2001.
     Route: 048
     Dates: start: 20010725, end: 20020311
  6. ZOPICLON [Concomitant]
     Route: 048
     Dates: start: 20010830

REACTIONS (16)
  - ACUTE STRESS DISORDER [None]
  - AGITATION [None]
  - CIRCULATORY COLLAPSE [None]
  - DEPRESSED MOOD [None]
  - DIZZINESS [None]
  - HAEMOGLOBIN DECREASED [None]
  - INSOMNIA [None]
  - MENTAL DISORDER [None]
  - MOOD SWINGS [None]
  - PULMONARY FIBROSIS [None]
  - RESTLESSNESS [None]
  - TINNITUS [None]
  - ULTRASOUND LIVER ABNORMAL [None]
  - URINARY TRACT INFECTION [None]
  - VERTIGO [None]
  - WHITE BLOOD CELL COUNT DECREASED [None]
